FAERS Safety Report 15954610 (Version 3)
Quarter: 2019Q1

REPORT INFORMATION
  Report Type: Report from Study
  Country: BE (occurrence: BE)
  Receive Date: 20190213
  Receipt Date: 20190318
  Transmission Date: 20190417
  Serious: Yes (Other)
  Sender: FDA-Public Use
  Company Number: BE-ROCHE-2193444

PATIENT

DRUGS (1)
  1. OCRELIZUMAB. [Suspect]
     Active Substance: OCRELIZUMAB
     Indication: PRIMARY PROGRESSIVE MULTIPLE SCLEROSIS
     Route: 065

REACTIONS (7)
  - Nausea [Unknown]
  - Dizziness [Unknown]
  - Peripheral swelling [Unknown]
  - Renal impairment [Unknown]
  - Carpal tunnel syndrome [Unknown]
  - Urinary tract infection [Unknown]
  - Back pain [Unknown]
